FAERS Safety Report 22159717 (Version 2)
Quarter: 2023Q2

REPORT INFORMATION
  Report Type: Spontaneous
  Country: US (occurrence: US)
  Receive Date: 20230331
  Receipt Date: 20230404
  Transmission Date: 20230722
  Serious: Yes (Hospitalization)
  Sender: FDA-Public Use
  Company Number: US-Fresenius Medical Care Renal Therapies Group-FMC-2303-000313

PATIENT
  Age: 74 Year
  Sex: Female
  Weight: 85.5 kg

DRUGS (2)
  1. DELFLEX WITH DEXTROSE 2.5% LOW MAGNESIUM LOW CALCIUM [Suspect]
     Active Substance: CALCIUM CHLORIDE\DEXTROSE\MAGNESIUM CHLORIDE\SODIUM CHLORIDE\SODIUM LACTATE
     Indication: End stage renal disease
     Dosage: CCPD, 7X WEEK, # EXCHANGES 3, FILL VOL 2500 ML CYC THERAPY VOL 11500 ML CYC THERAPY TIME 6 HRS. 0 M
     Route: 033
     Dates: start: 20211004
  2. DELFLEX WITH DEXTROSE 4.25% LOW MAGNESIUM LOW CALCIUM [Suspect]
     Active Substance: CALCIUM CHLORIDE\DEXTROSE\MAGNESIUM CHLORIDE\SODIUM CHLORIDE\SODIUM LACTATE
     Indication: End stage renal disease
     Dosage: CCPD, 7X WEEK, # EXCHANGES 3, FILL VOL 2500 ML CYC THERAPY VOL 11500 ML CYC THERAPY TIME 6 HRS. 0 M
     Route: 033
     Dates: start: 20211004

REACTIONS (1)
  - Hypervolaemia [Recovered/Resolved]
